FAERS Safety Report 9928333 (Version 1)
Quarter: 2014Q1

REPORT INFORMATION
  Report Type: Spontaneous
  Country: PT (occurrence: PT)
  Receive Date: 20140227
  Receipt Date: 20140227
  Transmission Date: 20141002
  Serious: Yes (Hospitalization)
  Sender: FDA-Public Use
  Company Number: PT-ASTRAZENECA-2014SE11797

PATIENT
  Age: 37 Year
  Sex: Female

DRUGS (4)
  1. PROPOFOL [Suspect]
     Indication: SEDATIVE THERAPY
     Route: 042
  2. OXYTOCIN [Suspect]
     Dosage: 10 U
     Route: 042
  3. MISOPROSTOL [Suspect]
     Route: 060
  4. ANESTHETIC AGENT [Concomitant]
     Indication: EPIDURAL ANAESTHESIA
     Route: 008

REACTIONS (3)
  - Hyperthermia [Recovered/Resolved]
  - Respiratory failure [Recovered/Resolved]
  - Acute pulmonary oedema [Recovered/Resolved]
